FAERS Safety Report 7382118-7 (Version None)
Quarter: 2011Q1

REPORT INFORMATION
  Report Type: 
  Country: None (occurrence: None)
  Receive Date: 20110329
  Receipt Date: 20110328
  Transmission Date: 20110831
  Serious: Yes (Hospitalization, Other)
  Sender: FDA-Public Use
  Company Number: PHHO2010US15341

PATIENT
  Sex: Male

DRUGS (18)
  1. FLUAD [Suspect]
     Indication: IMMUNISATION
     Dosage: .5 ML
     Route: 030
     Dates: start: 20100914, end: 20100914
  2. LIPITOR [Concomitant]
  3. QUINAPRIL [Suspect]
  4. SYNTHROID [Concomitant]
  5. ZETIA [Concomitant]
  6. PLAVIX [Concomitant]
  7. FLOMAX [Concomitant]
  8. GLYSET [Concomitant]
  9. LANTUS [Concomitant]
  10. ASPIRIN [Concomitant]
  11. LOPRESSOR [Suspect]
  12. HUMALOG [Concomitant]
  13. SPIRONOLACTONE [Concomitant]
  14. NIASPAN [Concomitant]
  15. FERROUS SULFATE TAB [Concomitant]
  16. FUROSEMIDE [Concomitant]
  17. IRON [Concomitant]
  18. NORVASC [Concomitant]

REACTIONS (14)
  - DYSPNOEA [None]
  - BLOOD CREATININE INCREASED [None]
  - ATRIAL FIBRILLATION [None]
  - NEPHROSCLEROSIS [None]
  - RENAL FAILURE CHRONIC [None]
  - FLUID OVERLOAD [None]
  - DIASTOLIC DYSFUNCTION [None]
  - PULMONARY OEDEMA [None]
  - DIABETIC NEPHROPATHY [None]
  - ACUTE PRERENAL FAILURE [None]
  - HYPERKALAEMIA [None]
  - CARDIAC FAILURE CONGESTIVE [None]
  - RENAL FAILURE ACUTE [None]
  - CARDIOVERSION [None]
